FAERS Safety Report 11987506 (Version 1)
Quarter: 2016Q1

REPORT INFORMATION
  Report Type: Spontaneous
  Country: US (occurrence: US)
  Receive Date: 20160202
  Receipt Date: 20160202
  Transmission Date: 20160526
  Serious: No
  Sender: FDA-Public Use
  Company Number: US-UCBSA-2015038309

PATIENT
  Age: 2 Year
  Sex: Female

DRUGS (1)
  1. KEPPRA [Suspect]
     Active Substance: LEVETIRACETAM
     Indication: PRODUCT USED FOR UNKNOWN INDICATION
     Dosage: 4.5 ML 2X DAILY

REACTIONS (4)
  - Seizure [Unknown]
  - Somnolence [Unknown]
  - Mood altered [Unknown]
  - Unevaluable event [Unknown]
